FAERS Safety Report 5902080-0 (Version None)
Quarter: 2008Q3

REPORT INFORMATION
  Report Type: 
  Country: None (occurrence: None)
  Receive Date: 20080929
  Receipt Date: 20080919
  Transmission Date: 20090109
  Serious: Yes (Hospitalization)
  Sender: FDA-Public Use
  Company Number: US-SANOFI-SYNTHELABO-F01200801480

PATIENT
  Sex: Female

DRUGS (2)
  1. CAPECITABINE [Suspect]
     Dosage: 3000 MG
     Dates: start: 20080731
  2. OXALIPLATIN [Suspect]
     Indication: COLON CANCER
     Dosage: UNK
     Route: 041

REACTIONS (4)
  - DEHYDRATION [None]
  - DIPLOPIA [None]
  - HYPOAESTHESIA [None]
  - THROAT TIGHTNESS [None]
